FAERS Safety Report 10884280 (Version 1)
Quarter: 2015Q1

REPORT INFORMATION
  Report Type: Spontaneous
  Country: MY (occurrence: None)
  Receive Date: 20150227
  Receipt Date: 20150227
  Transmission Date: 20150721
  Serious: Yes (Other)
  Sender: FDA-Public Use
  Company Number: 2015AKN00103

PATIENT
  Sex: Female

DRUGS (5)
  1. TIMOLOL (TIMOLOL) (NONE) [Concomitant]
     Active Substance: TIMOLOL
  2. PREDNISOLONE (PREDNISOLONE) [Suspect]
     Active Substance: PREDNISOLONE
     Indication: IRIDOCYCLITIS
     Route: 048
  3. PRED FORTE [Suspect]
     Active Substance: PREDNISOLONE ACETATE
     Indication: IRIDOCYCLITIS
     Dosage: EVERY 2 HOURS, OPHTHALMIC
     Route: 047
  4. TROPICAMIDE (TROPICAMIDE) [Concomitant]
     Active Substance: TROPICAMIDE
  5. TRIAMCINOLONE (TRIAMCINOLONE) [Suspect]
     Active Substance: TRIAMCINOLONE
     Indication: IRIDOCYCLITIS
     Route: 057

REACTIONS (2)
  - Conjunctival haemorrhage [None]
  - Conjunctival ulcer [None]
